FAERS Safety Report 19236482 (Version 2)
Quarter: 2021Q2

REPORT INFORMATION
  Report Type: Spontaneous
  Country: US (occurrence: US)
  Receive Date: 20210510
  Receipt Date: 20210511
  Transmission Date: 20210717
  Serious: Yes (Life-Threatening, Hospitalization)
  Sender: FDA-Public Use
  Company Number: US-JNJFOC-20210502023

PATIENT
  Age: 27 Year
  Sex: Female

DRUGS (1)
  1. TYLENOL [Suspect]
     Active Substance: ACETAMINOPHEN
     Indication: PRODUCT USED FOR UNKNOWN INDICATION
     Dosage: OVER 8000 MG TYLENOL PER DAY FOR ONE WEEK
     Route: 065

REACTIONS (4)
  - Acute hepatic failure [Recovering/Resolving]
  - Brain oedema [Recovering/Resolving]
  - Overdose [Recovering/Resolving]
  - Renal impairment [Recovering/Resolving]
